FAERS Safety Report 11540601 (Version 1)
Quarter: 2015Q3

REPORT INFORMATION
  Report Type: Spontaneous
  Country: US (occurrence: US)
  Receive Date: 20150923
  Receipt Date: 20150923
  Transmission Date: 20151125
  Serious: No
  Sender: FDA-Public Use
  Company Number: US-BEH-2015050770

PATIENT
  Sex: Female
  Weight: 60 kg

DRUGS (9)
  1. MUCINEX ALLERGY 180 MG [Concomitant]
     Dosage: 1 TAB PRN
     Route: 048
  2. ACETAMINOPHEN 325 MG [Concomitant]
     Dosage: 325 MG UD
     Route: 048
  3. DIPHENHYDRAMINE. [Concomitant]
     Active Substance: DIPHENHYDRAMINE
     Dosage: UD
     Route: 048
  4. PRIVIGEN [Suspect]
     Active Substance: HUMAN IMMUNOGLOBULIN G
     Indication: IMMUNODEFICIENCY COMMON VARIABLE
     Route: 042
  5. SODIUM CHLORIDE 0.9% [Concomitant]
     Active Substance: SODIUM CHLORIDE
     Dosage: 1 DOSE UD
     Route: 042
  6. PRIVIGEN [Suspect]
     Active Substance: HUMAN IMMUNOGLOBULIN G
     Route: 042
  7. PROBIOTIC 10B CELL CAPSULE [Concomitant]
     Dosage: 1 CAP PRN
     Route: 048
  8. MUCINEX D 600MG-60MG [Concomitant]
     Dosage: 600/60 MG, 1 TAB PRN
     Route: 048
  9. EPIPEN [Concomitant]
     Active Substance: EPINEPHRINE
     Indication: ANAPHYLACTIC REACTION
     Dosage: 0.3 MG PRN
     Route: 030

REACTIONS (1)
  - Sinusitis [Recovered/Resolved]
